FAERS Safety Report 18409088 (Version 1)
Quarter: 2020Q4

REPORT INFORMATION
  Report Type: Spontaneous
  Country: US (occurrence: US)
  Receive Date: 20201020
  Receipt Date: 20201020
  Transmission Date: 20210114
  Serious: No
  Sender: FDA-Public Use
  Company Number: None

PATIENT
  Age: 52 Year
  Sex: Female
  Weight: 81 kg

DRUGS (6)
  1. VIT D-3 [Concomitant]
  2. VITAMIN C [Concomitant]
     Active Substance: ASCORBIC ACID
  3. CRANBERRY. [Concomitant]
     Active Substance: CRANBERRY
  4. IRON [Concomitant]
     Active Substance: IRON
  5. OXCARBAZEPIN [Suspect]
     Active Substance: OXCARBAZEPINE
     Indication: TRIGEMINAL NEURALGIA
     Dosage: ?          QUANTITY:100 TABLET(S);OTHER FREQUENCY:2 TABLETS 2X DAY;?
     Route: 048
  6. SMZ ABAUGIO [Concomitant]

REACTIONS (2)
  - Drug ineffective [None]
  - Product substitution issue [None]

NARRATIVE: CASE EVENT DATE: 20201001
